FAERS Safety Report 10399743 (Version 3)
Quarter: 2014Q4

REPORT INFORMATION
  Report Type: Spontaneous
  Country: BE (occurrence: None)
  Receive Date: 20140819
  Receipt Date: 20141003
  Transmission Date: 20150528
  Serious: Yes (Other)
  Sender: FDA-Public Use
  Company Number: BE-016743

PATIENT
  Age: 88 Year
  Sex: Male

DRUGS (1)
  1. FIRMAGON [Suspect]
     Active Substance: DEGARELIX ACETATE
     Indication: PROSTATE CANCER
     Dosage: 80MG 1X/MONTH SUBCUTANEOUS
     Route: 058
     Dates: start: 20140507, end: 20140805

REACTIONS (5)
  - Erythema [None]
  - Pruritus [None]
  - Pemphigoid [None]
  - Pain [None]
  - Blister [None]

NARRATIVE: CASE EVENT DATE: 20140806
